FAERS Safety Report 11632464 (Version 4)
Quarter: 2015Q4

REPORT INFORMATION
  Report Type: Spontaneous
  Country: MX (occurrence: MX)
  Receive Date: 20151015
  Receipt Date: 20151218
  Transmission Date: 20160304
  Serious: Yes (Disabling, Other)
  Sender: FDA-Public Use
  Company Number: MX-ROCHE-1642393

PATIENT
  Age: 65 Year
  Sex: Female

DRUGS (1)
  1. AVASTIN [Suspect]
     Active Substance: BEVACIZUMAB
     Indication: DIABETIC RETINAL OEDEMA
     Dosage: UNIQUE DOSE?STRENGTH: 100MG/4ML
     Route: 050
     Dates: start: 20150910, end: 20150910

REACTIONS (5)
  - Off label use [Unknown]
  - Blindness [Unknown]
  - Suspected transmission of an infectious agent via product [Unknown]
  - Endophthalmitis [Unknown]
  - Suspected counterfeit product [Unknown]

NARRATIVE: CASE EVENT DATE: 20150910
